FAERS Safety Report 4453555-5 (Version None)
Quarter: 2004Q3

REPORT INFORMATION
  Report Type: 
  Country: None (occurrence: None)
  Receive Date: 20040903
  Receipt Date: 20040413
  Transmission Date: 20050211
  Serious: Yes (Other)
  Sender: FDA-Public Use
  Company Number: 2004206496US

PATIENT
  Sex: Female

DRUGS (1)
  1. CYTOTEC [Suspect]
     Dosage: 200 MCG VAGINALLY ONCE, VAGINAL
     Route: 067

REACTIONS (2)
  - ABORTION SPONTANEOUS [None]
  - UTERINE HAEMORRHAGE [None]
